FAERS Safety Report 11077525 (Version 2)
Quarter: 2015Q2

REPORT INFORMATION
  Report Type: Spontaneous
  Country: US (occurrence: US)
  Receive Date: 20150430
  Receipt Date: 20150526
  Transmission Date: 20150821
  Serious: No
  Sender: FDA-Public Use
  Company Number: US-JNJFOC-20150302905

PATIENT
  Sex: Male
  Weight: 58.97 kg

DRUGS (1)
  1. TYLENOL WITH CODEINE [Suspect]
     Active Substance: ACETAMINOPHEN\CODEINE PHOSPHATE
     Indication: PAIN
     Dosage: 300MG/30MG TABLETS
     Route: 048
     Dates: start: 2005

REACTIONS (2)
  - Pain [Unknown]
  - Drug dose omission [Unknown]
